FAERS Safety Report 21026398 (Version 1)
Quarter: 2022Q2

REPORT INFORMATION
  Report Type: Spontaneous
  Country: US (occurrence: None)
  Receive Date: 20220630
  Receipt Date: 20220630
  Transmission Date: 20220721
  Serious: Yes (Other)
  Sender: FDA-Public Use
  Company Number: US-ROCHE-3123278

PATIENT
  Age: 79 Year
  Sex: Male

DRUGS (2)
  1. AVASTIN [Suspect]
     Active Substance: BEVACIZUMAB
     Indication: Product used for unknown indication
     Route: 065
     Dates: start: 20210324
  2. LONSURF [Suspect]
     Active Substance: TIPIRACIL HYDROCHLORIDE\TRIFLURIDINE
     Indication: Colon cancer
     Route: 065
     Dates: start: 20210324

REACTIONS (9)
  - Chronic kidney disease [Unknown]
  - Arthritis [Recovering/Resolving]
  - Alopecia [Not Recovered/Not Resolved]
  - Arthralgia [Unknown]
  - Thrombocytopenia [Unknown]
  - Nausea [Unknown]
  - Taste disorder [Unknown]
  - Faeces soft [Not Recovered/Not Resolved]
  - Hair texture abnormal [Not Recovered/Not Resolved]
